FAERS Safety Report 9054097 (Version 2)
Quarter: 2013Q1

REPORT INFORMATION
  Report Type: Spontaneous
  Country: DE (occurrence: DE)
  Receive Date: 20130208
  Receipt Date: 20130326
  Transmission Date: 20140127
  Serious: Yes (Death)
  Sender: FDA-Public Use
  Company Number: DE-UCBSA-077829

PATIENT
  Age: 63 Year
  Sex: Female

DRUGS (3)
  1. VIMPAT [Suspect]
     Indication: STATUS EPILEPTICUS
  2. KEPPRA [Suspect]
     Indication: STATUS EPILEPTICUS
  3. VALPROATE [Concomitant]
     Indication: STATUS EPILEPTICUS

REACTIONS (1)
  - Drug ineffective for unapproved indication [Fatal]
